FAERS Safety Report 6308407-2 (Version None)
Quarter: 2009Q3

REPORT INFORMATION
  Report Type: 
  Country: None (occurrence: None)
  Receive Date: 20090813
  Receipt Date: 20090812
  Transmission Date: 20100115
  Serious: Yes (Hospitalization, Other)
  Sender: FDA-Public Use
  Company Number: US-GENENTECH-287749

PATIENT
  Sex: Female
  Weight: 70.295 kg

DRUGS (3)
  1. AVASTIN [Suspect]
     Indication: BREAST CANCER METASTATIC
     Dosage: 725 MG, Q3W
     Route: 042
     Dates: start: 20090707
  2. XELODA [Concomitant]
     Indication: BREAST CANCER METASTATIC
     Dosage: UNK
  3. TAXOTERE [Concomitant]
     Indication: BREAST CANCER METASTATIC
     Dosage: UNK
     Dates: start: 20090707

REACTIONS (1)
  - RENAL FAILURE [None]
